FAERS Safety Report 18459292 (Version 1)
Quarter: 2020Q4

REPORT INFORMATION
  Report Type: Spontaneous
  Country: US (occurrence: US)
  Receive Date: 20201103
  Receipt Date: 20201103
  Transmission Date: 20210114
  Serious: No
  Sender: FDA-Public Use
  Company Number: US-PFIZER INC-2020424458

PATIENT
  Age: 73 Year
  Sex: Female
  Weight: 59.87 kg

DRUGS (2)
  1. EXEMESTANE. [Concomitant]
     Active Substance: EXEMESTANE
     Indication: HORMONE THERAPY
     Dosage: UNK
  2. IBRANCE [Suspect]
     Active Substance: PALBOCICLIB
     Indication: BREAST CANCER METASTATIC
     Dosage: 125 MG, CYCLIC (TAKEN ONCE DAILY FOR 21 DAYS, THEN OFF FOR 7 DAYS)
     Dates: start: 201907, end: 2020

REACTIONS (4)
  - Fatigue [Recovering/Resolving]
  - Body height decreased [Not Recovered/Not Resolved]
  - Cognitive disorder [Unknown]
  - White blood cell count decreased [Recovering/Resolving]
